FAERS Safety Report 5701446-1 (Version None)
Quarter: 2008Q2

REPORT INFORMATION
  Report Type: 
  Country: None (occurrence: None)
  Receive Date: 20080410
  Receipt Date: 20080327
  Transmission Date: 20081010
  Serious: Yes (Life-Threatening, Hospitalization)
  Sender: FDA-Public Use
  Company Number: DE-GENENTECH-256569

PATIENT
  Sex: Female
  Weight: 39.002 kg

DRUGS (10)
  1. RITUXIMAB [Suspect]
     Indication: NON-HODGKIN'S LYMPHOMA
     Dosage: 375 MG/M2, Q21D
     Route: 042
  2. RITUXIMAB [Suspect]
     Dosage: 550 MG, QD
     Route: 042
     Dates: start: 20080312
  3. CYCLOPHOSPHAMIDE [Suspect]
     Indication: NON-HODGKIN'S LYMPHOMA
     Dosage: 500 MG/M2, Q21D
     Route: 042
     Dates: start: 20080204
  4. DOXORUBICIN HCL [Suspect]
     Indication: NON-HODGKIN'S LYMPHOMA
     Dosage: 50 MG/M2, Q21D
     Route: 042
     Dates: start: 20080204
  5. DOXORUBICIN HCL [Suspect]
     Dosage: 70 MG, QD
  6. VINCRISTINE SULFATE [Suspect]
     Indication: NON-HODGKIN'S LYMPHOMA
     Dosage: 1.4 MG/M2, Q21D
     Route: 042
     Dates: start: 20080204
  7. VINCRISTINE SULFATE [Suspect]
     Dosage: 2 MG, QD
  8. PREDNISOLONE [Concomitant]
     Indication: DRUG USE FOR UNKNOWN INDICATION
     Dosage: 100 MG, Q21D
     Dates: start: 20080204
  9. CARDIOXANE [Concomitant]
     Indication: DRUG USE FOR UNKNOWN INDICATION
     Dosage: 1500 MG, UNK
     Dates: start: 20080204
  10. OCTAGAM [Concomitant]
     Indication: DRUG USE FOR UNKNOWN INDICATION
     Dates: start: 20080312

REACTIONS (4)
  - DEHYDRATION [None]
  - HYPOCHROMIC ANAEMIA [None]
  - NEUTROPENIA [None]
  - SYSTEMIC INFLAMMATORY RESPONSE SYNDROME [None]
